FAERS Safety Report 5809351-7 (Version None)
Quarter: 2008Q3

REPORT INFORMATION
  Report Type: 
  Country: None (occurrence: None)
  Receive Date: 20080714
  Receipt Date: 20080701
  Transmission Date: 20090109
  Serious: Yes (Other)
  Sender: FDA-Public Use
  Company Number: PHBS2008JP05028

PATIENT
  Age: 33 Year
  Sex: Female

DRUGS (1)
  1. METHERGINE [Suspect]
     Indication: UTERINE CONTRACTIONS ABNORMAL

REACTIONS (8)
  - ALTERED STATE OF CONSCIOUSNESS [None]
  - ANGIOGRAM ABNORMAL [None]
  - CEREBELLAR ATAXIA [None]
  - CEREBELLAR INFARCTION [None]
  - CEREBROVASCULAR SPASM [None]
  - COMA [None]
  - DYSARTHRIA [None]
  - HEMIPARESIS [None]
